FAERS Safety Report 19099755 (Version 2)
Quarter: 2021Q2

REPORT INFORMATION
  Report Type: Spontaneous
  Country: FI (occurrence: FI)
  Receive Date: 20210406
  Receipt Date: 20210419
  Transmission Date: 20210717
  Serious: Yes (Death, Other)
  Sender: FDA-Public Use
  Company Number: FI-BAXTER-2021BAX006121

PATIENT
  Age: 14 Year
  Sex: Female

DRUGS (15)
  1. AZTREONAM. [Suspect]
     Active Substance: AZTREONAM
     Indication: PRODUCT USED FOR UNKNOWN INDICATION
     Route: 065
  2. ACICLOVIR [Suspect]
     Active Substance: ACYCLOVIR
     Indication: OPHTHALMIC HERPES ZOSTER
     Route: 065
  3. CASPOFUNGIN [Suspect]
     Active Substance: CASPOFUNGIN
     Indication: ANTIFUNGAL PROPHYLAXIS
     Dosage: 50 MG/M2/DAY IV FROM DAY 4 TO DAY 17
     Route: 041
  4. VANCOMYCIN [Suspect]
     Active Substance: VANCOMYCIN
     Indication: OPHTHALMIC HERPES ZOSTER
     Route: 065
  5. METHOTREXATE. [Suspect]
     Active Substance: METHOTREXATE
     Indication: PROPHYLAXIS AGAINST GRAFT VERSUS HOST DISEASE
     Dosage: SHORT COURSE
     Route: 065
  6. FLUCONAZOLE BAXTER 2 MG/ML INFUUSIONESTE, LIUOS [Suspect]
     Active Substance: FLUCONAZOLE
     Indication: ANTIFUNGAL PROPHYLAXIS
     Route: 065
  7. NETILMYCIN [Suspect]
     Active Substance: NETILMICIN
     Indication: OPHTHALMIC HERPES ZOSTER
     Route: 065
  8. TEICOPLANIN [Suspect]
     Active Substance: TEICOPLANIN
     Indication: OPHTHALMIC HERPES ZOSTER
     Route: 065
  9. MYCOPHENOLATE MOFETIL. [Suspect]
     Active Substance: MYCOPHENOLATE MOFETIL
     Indication: PROPHYLAXIS AGAINST GRAFT VERSUS HOST DISEASE
     Dosage: SHORT COURSE
     Route: 065
  10. GANCYCLOVIR [Suspect]
     Active Substance: GANCICLOVIR
     Indication: OPHTHALMIC HERPES ZOSTER
     Route: 065
  11. VORICONAZOLE. [Suspect]
     Active Substance: VORICONAZOLE
     Indication: ANTIFUNGAL PROPHYLAXIS
     Dosage: 14 MG/KG/DAY I.V. WAS ADDED ON DAY 17
     Route: 042
  12. SENDOXAN 2000 MG INJEKTIOKUIVA?AINE, LIUOSTA VARTEN [Suspect]
     Active Substance: CYCLOPHOSPHAMIDE
     Indication: BONE MARROW CONDITIONING REGIMEN
     Route: 065
  13. LIPOSOMAL AMPHOTERICIN B [Suspect]
     Active Substance: AMPHOTERICIN B
     Indication: ANTIFUNGAL PROPHYLAXIS
     Dosage: 5 MG/KG/DAY I.V. ON DAY 18
     Route: 042
  14. CEFTAZIDIME. [Suspect]
     Active Substance: CEFTAZIDIME
     Indication: OPHTHALMIC HERPES ZOSTER
     Route: 065
  15. ETOPOSIDE. [Suspect]
     Active Substance: ETOPOSIDE
     Indication: BONE MARROW CONDITIONING REGIMEN
     Route: 065

REACTIONS (7)
  - Pyrexia [Unknown]
  - Renal impairment [Recovering/Resolving]
  - Skin exfoliation [Unknown]
  - Skin disorder [Unknown]
  - Off label use [Recovered/Resolved]
  - Mucormycosis [Fatal]
  - Neutropenia [Not Recovered/Not Resolved]
